FAERS Safety Report 24014938 (Version 1)
Quarter: 2024Q2

REPORT INFORMATION
  Report Type: Report from Study
  Country: CA (occurrence: CA)
  Receive Date: 20240626
  Receipt Date: 20240626
  Transmission Date: 20240716
  Serious: Yes (Death, Hospitalization)
  Sender: FDA-Public Use
  Company Number: CA-BIOCON BIOLOGICS LIMITED-BBL2024004715

PATIENT

DRUGS (4)
  1. HULIO [Suspect]
     Active Substance: ADALIMUMAB-FKJP
     Indication: Crohn^s disease
     Dosage: 40 MILLIGRAM, QW, SOLUTION
     Route: 058
  2. HULIO [Suspect]
     Active Substance: ADALIMUMAB-FKJP
     Indication: Arthritis
     Dosage: 40 MILLIGRAM, QW, SOLUTION
     Route: 058
  3. HULIO [Suspect]
     Active Substance: ADALIMUMAB-FKJP
     Dosage: UNK, SOLUTION
     Route: 065
  4. PREDNISONE [Concomitant]
     Active Substance: PREDNISONE
     Indication: Product used for unknown indication
     Dosage: UNK
     Route: 065

REACTIONS (10)
  - Death [Fatal]
  - Bladder neoplasm [Fatal]
  - Mass [Fatal]
  - Short-bowel syndrome [Fatal]
  - Hospitalisation [Fatal]
  - Rash macular [Fatal]
  - Diarrhoea [Fatal]
  - Abdominal pain [Fatal]
  - Off label use [Fatal]
  - Product dose omission issue [Fatal]
